FAERS Safety Report 5767222-9 (Version None)
Quarter: 2008Q2

REPORT INFORMATION
  Report Type: 
  Country: None (occurrence: None)
  Receive Date: 20080602
  Receipt Date: 20071206
  Transmission Date: 20081010
  Serious: Yes (Death)
  Sender: FDA-Public Use
  Company Number: 2007-05602

PATIENT
  Sex: Female

DRUGS (4)
  1. CARISOPRODOL [Suspect]
     Indication: DRUG USE FOR UNKNOWN INDICATION
     Dosage: (LARGE DOSE), ORAL
     Route: 048
     Dates: end: 20051120
  2. HYDROCODONE BITARTRATE + ACETAMINOPHEN [Suspect]
     Indication: DRUG USE FOR UNKNOWN INDICATION
     Dosage: (LARGE DOSE), ORAL
     Route: 048
     Dates: end: 20051120
  3. OXYCODONE HYDROCHLORIDE [Suspect]
     Indication: DRUG USE FOR UNKNOWN INDICATION
     Dosage: (LARGE DOSE), ORAL
     Route: 048
     Dates: end: 20051120
  4. ALPRAZOLAM [Suspect]
     Dosage: (LARGE DOSE), ORAL
     Route: 048
     Dates: end: 20051120

REACTIONS (2)
  - OVERDOSE [None]
  - POTENTIATING DRUG INTERACTION [None]
